FAERS Safety Report 8942754 (Version 3)
Quarter: 2014Q1

REPORT INFORMATION
  Report Type: Spontaneous
  Country: US (occurrence: US)
  Receive Date: 20121204
  Receipt Date: 20140327
  Transmission Date: 20141002
  Serious: Yes (Hospitalization)
  Sender: FDA-Public Use
  Company Number: US-BAYER-2012-126372

PATIENT
  Age: 18 Year
  Sex: Female
  Weight: 61.68 kg

DRUGS (17)
  1. YAZ [Suspect]
     Indication: ACNE
     Dosage: UNK
     Dates: start: 2008, end: 2011
  2. OCELLA [Suspect]
     Indication: ACNE
     Dosage: UNK
     Dates: start: 2008, end: 2011
  3. BEYAZ [Suspect]
  4. IBUPROFEN [Concomitant]
  5. OMEPRAZOL [Concomitant]
     Indication: IRRITABLE BOWEL SYNDROME
     Dosage: UNK
     Dates: start: 201008
  6. OMEPRAZOL [Concomitant]
     Indication: GASTROOESOPHAGEAL REFLUX DISEASE
  7. OMEPRAZOL [Concomitant]
     Indication: GASTROOESOPHAGEAL REFLUX DISEASE
  8. BENTYL [Concomitant]
     Indication: IRRITABLE BOWEL SYNDROME
     Dosage: UNK
  9. BENTYL [Concomitant]
     Indication: GASTROOESOPHAGEAL REFLUX DISEASE
  10. BENTYL [Concomitant]
     Indication: GASTROOESOPHAGEAL REFLUX DISEASE
  11. DEXILANT [Concomitant]
     Indication: IRRITABLE BOWEL SYNDROME
  12. DEXILANT [Concomitant]
     Indication: GASTROOESOPHAGEAL REFLUX DISEASE
  13. DEXILANT [Concomitant]
     Indication: GASTROOESOPHAGEAL REFLUX DISEASE
  14. ZOLOFT [Concomitant]
     Indication: ANXIETY
  15. CLARITIN [Concomitant]
     Indication: HYPERSENSITIVITY
  16. FLUTICASONE PROPIONATE [Concomitant]
     Dosage: UNK
     Dates: start: 20111005
  17. HYDROCORTISONE VALERATE [Concomitant]
     Dosage: UNK
     Dates: start: 20110826

REACTIONS (5)
  - Pulmonary embolism [None]
  - Thrombosis [None]
  - Injury [None]
  - Pain [None]
  - Pain [None]
